FAERS Safety Report 5067909-X (Version None)
Quarter: 2006Q3

REPORT INFORMATION
  Report Type: 
  Country: None (occurrence: None)
  Receive Date: 20060728
  Receipt Date: 20060711
  Transmission Date: 20061208
  Serious: Yes (Other)
  Sender: FDA-Public Use
  Company Number: FR200607002295

PATIENT
  Age: 46 Year
  Sex: Female

DRUGS (1)
  1. GEMCITABINE HYDROCHLORIDE(GEMCITABINE HYDROCHLORIDE UNKNOWN FORMULATIO [Suspect]
     Indication: OVARIAN CANCER METASTATIC
     Dates: start: 19970701

REACTIONS (8)
  - DRUG TOXICITY [None]
  - HAEMOLYTIC ANAEMIA [None]
  - HYPERTENSION [None]
  - NEPHROTIC SYNDROME [None]
  - PULMONARY OEDEMA [None]
  - RENAL FAILURE ACUTE [None]
  - RESPIRATORY DISTRESS [None]
  - THROMBOTIC MICROANGIOPATHY [None]
